FAERS Safety Report 10154959 (Version 1)
Quarter: 2014Q2

REPORT INFORMATION
  Report Type: Spontaneous
  Country: US (occurrence: US)
  Receive Date: 20140506
  Receipt Date: 20140506
  Transmission Date: 20141212
  Serious: No
  Sender: FDA-Public Use
  Company Number: US-BAYER-2014-065536

PATIENT
  Age: 85 Year
  Sex: Male
  Weight: 98 kg

DRUGS (5)
  1. ALEVE CAPLET [Suspect]
     Indication: ARTHRITIS
     Dosage: 2.5 DF, PRN
     Route: 048
     Dates: start: 2010
  2. VITAMIN B12 [Concomitant]
  3. LUTEIN [Concomitant]
  4. TOPROL [Concomitant]
  5. LISINOPRIL [Concomitant]

REACTIONS (2)
  - Platelet count decreased [None]
  - Incorrect dose administered [None]
